FAERS Safety Report 7102493-8 (Version None)
Quarter: 2010Q4

REPORT INFORMATION
  Report Type: 
  Country: None (occurrence: None)
  Receive Date: 20101115
  Receipt Date: 20101104
  Transmission Date: 20110411
  Serious: Yes (Other)
  Sender: FDA-Public Use
  Company Number: CA-ROCHE-739516

PATIENT
  Sex: Female
  Weight: 52.2 kg

DRUGS (4)
  1. BEVACIZUMAB [Suspect]
     Indication: GLIOBLASTOMA
     Dosage: FORM: INFUSION
     Route: 042
     Dates: start: 20100902
  2. SYNTHROID [Concomitant]
  3. CALCIUM [Concomitant]
  4. APO-SULFATRIM [Concomitant]
     Indication: INFECTION PROPHYLAXIS

REACTIONS (7)
  - ARTHRALGIA [None]
  - COUGH [None]
  - GLAUCOMA [None]
  - MALIGNANT NEOPLASM PROGRESSION [None]
  - ORAL HERPES [None]
  - PYREXIA [None]
  - VOMITING [None]
